FAERS Safety Report 9474904 (Version 2)
Quarter: 2013Q3

REPORT INFORMATION
  Report Type: Spontaneous
  Country: GB (occurrence: GB)
  Receive Date: 20130823
  Receipt Date: 20130823
  Transmission Date: 20140515
  Serious: Yes (Other)
  Sender: FDA-Public Use
  Company Number: GB-ROCHE-1255626

PATIENT
  Sex: Female

DRUGS (1)
  1. HERCEPTIN [Suspect]
     Indication: PRODUCT USED FOR UNKNOWN INDICATION
     Dosage: CYCLE 15
     Route: 065

REACTIONS (4)
  - Neuropathy peripheral [Unknown]
  - Lymphoedema [Unknown]
  - Dysuria [Unknown]
  - Mouth ulceration [Unknown]
